FAERS Safety Report 6188629-4 (Version None)
Quarter: 2009Q2

REPORT INFORMATION
  Report Type: 
  Country: None (occurrence: None)
  Receive Date: 20090513
  Receipt Date: 20090504
  Transmission Date: 20091009
  Serious: Yes (Hospitalization)
  Sender: FDA-Public Use
  Company Number: B0573601A

PATIENT
  Sex: Male
  Weight: 181 kg

DRUGS (4)
  1. AUGMENTIN '125' [Suspect]
     Indication: RESPIRATORY TRACT INFECTION
     Route: 048
     Dates: start: 20081229
  2. AUGMENTIN '125' [Suspect]
     Dates: start: 20090119
  3. NEXIUM [Concomitant]
     Route: 048
  4. DIOVAN [Concomitant]
     Route: 048
     Dates: start: 19990101

REACTIONS (11)
  - C-REACTIVE PROTEIN INCREASED [None]
  - CHOLESTASIS [None]
  - CHROMATURIA [None]
  - FAECES DISCOLOURED [None]
  - FATIGUE [None]
  - HEPATITIS CHOLESTATIC [None]
  - JAUNDICE [None]
  - LABORATORY TEST ABNORMAL [None]
  - MALAISE [None]
  - SERUM FERRITIN INCREASED [None]
  - YELLOW SKIN [None]
